FAERS Safety Report 15947958 (Version 1)
Quarter: 2019Q1

REPORT INFORMATION
  Report Type: Report from Study
  Country: CA (occurrence: CA)
  Receive Date: 20190212
  Receipt Date: 20190212
  Transmission Date: 20190417
  Serious: Yes (Death, Hospitalization)
  Sender: FDA-Public Use
  Company Number: CA-TAKEDA-2017TUS024794

PATIENT
  Age: 54 Year
  Sex: Female

DRUGS (2)
  1. PONATINIB [Suspect]
     Active Substance: PONATINIB
     Indication: ACUTE LYMPHOCYTIC LEUKAEMIA
     Dosage: 45 MG, UNK
     Route: 048
     Dates: start: 20171016
  2. ALENDRONATE TEVA [Suspect]
     Active Substance: ALENDRONATE SODIUM
     Indication: OSTEOPOROSIS PROPHYLAXIS
     Dosage: 70 MG, 1/WEEK
     Route: 065

REACTIONS (11)
  - Pain [Unknown]
  - Nasopharyngitis [Unknown]
  - Arthralgia [Unknown]
  - Muscle spasms [Unknown]
  - Malaise [Unknown]
  - Cognitive disorder [Unknown]
  - Fatigue [Unknown]
  - Bone density decreased [Unknown]
  - Weight decreased [Unknown]
  - Death [Fatal]
  - Sleep disorder [Unknown]

NARRATIVE: CASE EVENT DATE: 20180210
